FAERS Safety Report 15147334 (Version 2)
Quarter: 2018Q3

REPORT INFORMATION
  Report Type: Spontaneous
  Country: IT (occurrence: IT)
  Receive Date: 20180716
  Receipt Date: 20180717
  Transmission Date: 20181010
  Serious: Yes (Other)
  Sender: FDA-Public Use
  Company Number: IT-SUN PHARMACEUTICAL INDUSTRIES LTD-2018RR-178369

PATIENT
  Age: 46 Year
  Sex: Female

DRUGS (1)
  1. TEMOZOLOMIDE. [Suspect]
     Active Substance: TEMOZOLOMIDE
     Indication: ANAPLASTIC ASTROCYTOMA
     Dosage: ()
     Route: 048
     Dates: start: 20160111, end: 20160321

REACTIONS (5)
  - Pyrexia [Recovered/Resolved]
  - Pruritus [Recovered/Resolved]
  - Hypertransaminasaemia [Recovered/Resolved]
  - Pain [Recovered/Resolved]
  - Erythema [Recovered/Resolved]

NARRATIVE: CASE EVENT DATE: 20160322
